FAERS Safety Report 14798279 (Version 1)
Quarter: 2018Q2

REPORT INFORMATION
  Report Type: Spontaneous
  Country: US (occurrence: US)
  Receive Date: 20180424
  Receipt Date: 20180424
  Transmission Date: 20180711
  Serious: No
  Sender: FDA-Public Use
  Company Number: US-UNICHEM PHARMACEUTICALS (USA) INC-UCM201803-000060

PATIENT
  Age: 64 Year
  Sex: Male
  Weight: 99.33 kg

DRUGS (3)
  1. PERPHENAZINE. [Concomitant]
     Active Substance: PERPHENAZINE
  2. ABILIFY [Concomitant]
     Active Substance: ARIPIPRAZOLE
  3. DIVALPROEX SODIUM. [Suspect]
     Active Substance: DIVALPROEX SODIUM

REACTIONS (1)
  - Alopecia [Unknown]
